FAERS Safety Report 16245988 (Version 1)
Quarter: 2019Q2

REPORT INFORMATION
  Report Type: Report from Study
  Country: US (occurrence: US)
  Receive Date: 20190426
  Receipt Date: 20190426
  Transmission Date: 20190711
  Serious: Yes (Hospitalization)
  Sender: FDA-Public Use
  Company Number: US-GILEAD-2019-0404322

PATIENT
  Age: 80 Year
  Sex: Female

DRUGS (5)
  1. CARDIZEM [Concomitant]
     Active Substance: DILTIAZEM HYDROCHLORIDE
     Dosage: NOT PROVIDED, LONG ACTING TABLET ONCE DAILY.
     Dates: end: 201904
  2. DEXAMETHASONE. [Concomitant]
     Active Substance: DEXAMETHASONE
     Dosage: 2MG TABLET BY MOUTH DAILY.
     Dates: start: 20190423
  3. MARINOL [ALLOPURINOL] [Suspect]
     Active Substance: ALLOPURINOL
     Indication: PRODUCT USED FOR UNKNOWN INDICATION
     Dosage: NOT PROVIDED, CAPSULE BY MOUTH.
     Route: 048
     Dates: start: 20190401, end: 20190415
  4. CARDIAZEM [DILTIAZEM] [Concomitant]
     Dosage: NOT PROVIDED, TABLET BY MOUTH THREE TIMES DAILY.
     Route: 048
     Dates: start: 201904
  5. IDELALISIB [Suspect]
     Active Substance: IDELALISIB
     Indication: LYMPHOMA
     Dosage: UNK
     Route: 065
     Dates: start: 20180116, end: 20180403

REACTIONS (9)
  - Dehydration [Unknown]
  - Confusional state [Recovering/Resolving]
  - Decreased appetite [Unknown]
  - Asthenia [Unknown]
  - Orthostatic hypotension [Not Recovered/Not Resolved]
  - Gait inability [Not Recovered/Not Resolved]
  - Somnolence [Recovering/Resolving]
  - Unevaluable event [Not Recovered/Not Resolved]
  - Weight decreased [Not Recovered/Not Resolved]

NARRATIVE: CASE EVENT DATE: 201902
